FAERS Safety Report 23100592 (Version 1)
Quarter: 2023Q4

REPORT INFORMATION
  Report Type: Report from Study
  Country: US (occurrence: US)
  Receive Date: 20231024
  Receipt Date: 20231024
  Transmission Date: 20240109
  Serious: Yes (Other)
  Sender: FDA-Public Use
  Company Number: US-PFIZER INC-202300335594

PATIENT
  Age: 41 Year
  Sex: Female

DRUGS (5)
  1. GENTAMICIN SULFATE [Suspect]
     Active Substance: GENTAMICIN SULFATE
     Indication: Klebsiella bacteraemia
     Dosage: STARTED ON DAY 10
  2. MEROPENEM [Concomitant]
     Active Substance: MEROPENEM
     Indication: Klebsiella bacteraemia
     Dosage: STARTED DAY 10
  3. PIPERACILLIN AND TAZOBACTAM [Concomitant]
     Active Substance: PIPERACILLIN SODIUM\TAZOBACTAM SODIUM
     Indication: Klebsiella bacteraemia
     Dosage: STARTED DAY 1 PRIOR
  4. TIGECYCLINE [Concomitant]
     Active Substance: TIGECYCLINE
     Indication: Klebsiella bacteraemia
     Dosage: 0.5 UG/ML
  5. COLISTIN [Concomitant]
     Active Substance: COLISTIN
     Indication: Klebsiella bacteraemia
     Dosage: 0.25 UG/ML

REACTIONS (1)
  - Renal failure [Unknown]
